FAERS Safety Report 10184824 (Version 1)
Quarter: 2014Q2

REPORT INFORMATION
  Report Type: Spontaneous
  Country: US (occurrence: None)
  Receive Date: 20140520
  Receipt Date: 20140520
  Transmission Date: 20141212
  Serious: Yes (Hospitalization)
  Sender: FDA-Public Use
  Company Number: None

PATIENT
  Age: 40 Year
  Sex: Female

DRUGS (4)
  1. VANCOMYCIN [Suspect]
     Indication: INFECTION
     Route: 042
     Dates: start: 20120807, end: 20120807
  2. ACETAMINOPHEN [Concomitant]
  3. LORAZEPAM [Concomitant]
  4. ONDANSETRON [Concomitant]

REACTIONS (4)
  - Lip swelling [None]
  - Pruritus [None]
  - Pruritus [None]
  - Rash macular [None]
